FAERS Safety Report 8472766 (Version 3)
Quarter: 2015Q1

REPORT INFORMATION
  Report Type: Report from Study
  Country: BR (occurrence: BR)
  Receive Date: 20120322
  Receipt Date: 20150312
  Transmission Date: 20150721
  Serious: Yes (Hospitalization, Other)
  Sender: FDA-Public Use
  Company Number: BR-PFIZER INC-2011289431

PATIENT
  Age: 63 Year
  Sex: Female
  Weight: 83.5 kg

DRUGS (11)
  1. METICORTEN [Concomitant]
     Active Substance: PREDNISONE
     Indication: ARTHRITIS
     Dosage: 5 MG, DAILY
  2. ATORVASTATIN CALCIUM. [Suspect]
     Active Substance: ATORVASTATIN CALCIUM
     Dosage: 10 MG, 2 TABLETS DAILY
     Dates: start: 1998
  3. ATORVASTATIN CALCIUM. [Suspect]
     Active Substance: ATORVASTATIN CALCIUM
     Dosage: UNK
  4. URBANIL [Concomitant]
     Active Substance: CLOBAZAM
     Indication: ANXIOLYTIC THERAPY
     Dosage: 1 DF, DAILY
     Dates: start: 2009
  5. LIPITOR [Suspect]
     Active Substance: ATORVASTATIN CALCIUM
     Indication: CARDIAC DISORDER
     Dosage: 40 MG, 1X/DAY
     Dates: start: 1996, end: 1998
  6. LIPITOR [Suspect]
     Active Substance: ATORVASTATIN CALCIUM
     Indication: BLOOD CHOLESTEROL INCREASED
  7. CARDIZEM [Concomitant]
     Active Substance: DILTIAZEM HYDROCHLORIDE
     Indication: HYPERTENSION
     Dosage: 120 MG, DAILY
     Dates: start: 2010
  8. EUTHYROX [Concomitant]
     Active Substance: LEVOTHYROXINE SODIUM
     Indication: THYROID DISORDER
     Dosage: 1 DF, DAILY
     Dates: start: 1980
  9. METHOTREXATE [Concomitant]
     Active Substance: METHOTREXATE
     Indication: RHEUMATOID ARTHRITIS
     Dosage: 1 DF DAILY, MONDAY, WEDNESDAY, FRIDAY
     Dates: start: 1998
  10. ENDOFOLIN [Concomitant]
     Active Substance: FOLIC ACID
     Indication: VITAMIN C
     Dosage: 30 MG, DAILY
     Dates: start: 2009
  11. OMEPRAZOLE. [Concomitant]
     Active Substance: OMEPRAZOLE
     Indication: PROPHYLAXIS
     Dosage: 2 DF, DAILY
     Dates: start: 2009, end: 201501

REACTIONS (6)
  - Blindness [Unknown]
  - Cerebrovascular accident [Recovered/Resolved]
  - Nervous system disorder [Recovered/Resolved]
  - Meningioma [Unknown]
  - Cardiac disorder [Unknown]
  - Carotid artery disease [Recovered/Resolved]

NARRATIVE: CASE EVENT DATE: 1998
